FAERS Safety Report 5416942-4 (Version None)
Quarter: 2007Q3

REPORT INFORMATION
  Report Type: 
  Country: None (occurrence: None)
  Receive Date: 20070816
  Receipt Date: 20070806
  Transmission Date: 20080115
  Serious: Yes (Hospitalization)
  Sender: FDA-Public Use
  Company Number: FR-PFIZER INC-2006091555

PATIENT
  Sex: Male
  Weight: 63 kg

DRUGS (8)
  1. SU-011,248 [Suspect]
     Indication: RENAL CELL CARCINOMA STAGE UNSPECIFIED
     Route: 048
  2. ZOLPIDEM TARTRATE [Concomitant]
  3. PREDNISOLONE [Concomitant]
  4. BEZAFIBRATE [Concomitant]
  5. ANTALVIC [Concomitant]
  6. CETIRIZINE HCL [Concomitant]
  7. COLD CREAM [Concomitant]
  8. CORTICOSTEROIDS [Concomitant]

REACTIONS (1)
  - CHEST PAIN [None]
